FAERS Safety Report 6204859-7 (Version None)
Quarter: 2009Q2

REPORT INFORMATION
  Report Type: 
  Country: None (occurrence: None)
  Receive Date: 20090522
  Receipt Date: 20090521
  Transmission Date: 20091009
  Serious: Yes (Hospitalization)
  Sender: FDA-Public Use
  Company Number: TPA2009A01028

PATIENT
  Age: 47 Year
  Sex: Female

DRUGS (1)
  1. ACTOPLUS MET [Suspect]
     Indication: TYPE 2 DIABETES MELLITUS
     Dosage: 15/850 MG, PER ORAL
     Route: 048
     Dates: start: 20090515

REACTIONS (4)
  - ABDOMINAL PAIN [None]
  - FALL [None]
  - SYNCOPE [None]
  - URINARY TRACT INFECTION [None]
